FAERS Safety Report 7417152-1 (Version None)
Quarter: 2011Q2

REPORT INFORMATION
  Report Type: 
  Country: None (occurrence: None)
  Receive Date: 20110415
  Receipt Date: 20100325
  Transmission Date: 20111010
  Serious: Yes (Other)
  Sender: FDA-Public Use
  Company Number: US-BAYER-201011896NA

PATIENT
  Age: 28 Year
  Sex: Female
  Weight: 104.55 kg

DRUGS (8)
  1. BIOFLAVONOIDS [BIOFLAVONOIDS] [Concomitant]
     Indication: PRODUCT USED FOR UNKNOWN INDICATION
     Dates: start: 20090101, end: 20090101
  2. YAZ [Suspect]
     Route: 048
     Dates: start: 20070301, end: 20091001
  3. PEPCID [Concomitant]
     Indication: PRODUCT USED FOR UNKNOWN INDICATION
  4. ALLEGRA [Concomitant]
     Indication: RHINITIS ALLERGIC
     Route: 065
  5. LOESTRIN 1.5/30 [Concomitant]
     Dosage: UNK
     Dates: start: 20091023
  6. PHENERGAN HCL [Concomitant]
     Indication: PRODUCT USED FOR UNKNOWN INDICATION
  7. CLARITIN [Concomitant]
     Indication: PRODUCT USED FOR UNKNOWN INDICATION
     Dates: start: 20070101, end: 20090101
  8. PROTONIX [Concomitant]
     Indication: PRODUCT USED FOR UNKNOWN INDICATION

REACTIONS (7)
  - VOMITING [None]
  - CHOLECYSTITIS [None]
  - NAUSEA [None]
  - ABDOMINAL PAIN [None]
  - CHOLELITHIASIS [None]
  - ABDOMINAL PAIN UPPER [None]
  - POST PROCEDURAL INFECTION [None]
